FAERS Safety Report 18195166 (Version 4)
Quarter: 2021Q1

REPORT INFORMATION
  Report Type: Spontaneous
  Country: JP (occurrence: JP)
  Receive Date: 20200825
  Receipt Date: 20210108
  Transmission Date: 20210419
  Serious: Yes (Death)
  Sender: FDA-Public Use
  Company Number: JP-REGENERON PHARMACEUTICALS, INC.-2020-71994

PATIENT

DRUGS (2)
  1. EYLEA [Suspect]
     Active Substance: AFLIBERCEPT
     Dosage: RIGHT EYE
     Route: 031
     Dates: end: 20141103
  2. EYLEA [Suspect]
     Active Substance: AFLIBERCEPT
     Indication: DIABETIC RETINAL OEDEMA
     Dosage: 2MG, ONCE, RIGHT EYE
     Route: 031
     Dates: start: 20140819, end: 20140819

REACTIONS (4)
  - Retinal vasculitis [Fatal]
  - Retinal vascular occlusion [Fatal]
  - Retinal artery occlusion [Fatal]
  - Blindness unilateral [Fatal]

NARRATIVE: CASE EVENT DATE: 20140826
